FAERS Safety Report 14233457 (Version 1)
Quarter: 2017Q4

REPORT INFORMATION
  Report Type: Spontaneous
  Country: IE (occurrence: IE)
  Receive Date: 20171128
  Receipt Date: 20171128
  Transmission Date: 20180321
  Serious: Yes (Hospitalization, Other)
  Sender: FDA-Public Use
  Company Number: IE-TEVA-2017-IE-827090

PATIENT
  Age: 64 Year
  Sex: Female

DRUGS (1)
  1. CINQAERO [Suspect]
     Active Substance: RESLIZUMAB
     Dosage: 3 DOSES
     Route: 042
     Dates: start: 20170914

REACTIONS (2)
  - Multiple fractures [Unknown]
  - Pain [Unknown]

NARRATIVE: CASE EVENT DATE: 20171113
